FAERS Safety Report 4547056-3 (Version None)
Quarter: 2005Q1

REPORT INFORMATION
  Report Type: 
  Country: None (occurrence: None)
  Receive Date: 20050107
  Receipt Date: 20041108
  Transmission Date: 20050727
  Serious: Yes (Other)
  Sender: FDA-Public Use
  Company Number: PHNU2004DE03793

PATIENT
  Sex: Male

DRUGS (22)
  1. ECT (ELECTRO CONVULSIVE THERAPY) [Suspect]
  2. NEUROCIL [Suspect]
     Dosage: 350 MG/DAY
     Route: 048
     Dates: start: 20040601, end: 20040705
  3. NEUROCIL [Suspect]
     Dosage: 250 MG/DAY
     Route: 048
     Dates: start: 20040706, end: 20040706
  4. NEUROCIL [Suspect]
     Dosage: 200 MG/DAY
     Route: 048
     Dates: start: 20040707, end: 20040707
  5. NEUROCIL [Suspect]
     Dosage: 125 MG/DAY
     Dates: start: 20040708, end: 20040708
  6. NEUROCIL [Suspect]
     Dosage: 75 MG/DAY
     Route: 048
     Dates: start: 20040709, end: 20040709
  7. NEUROCIL [Suspect]
     Dosage: 50 MG/DAY
     Route: 048
     Dates: start: 20040710, end: 20040710
  8. GASTROZEPIN [Concomitant]
     Dosage: 25 MG/DAY
     Route: 048
     Dates: start: 20040619, end: 20040620
  9. GASTROZEPIN [Concomitant]
     Dosage: 50 MG/DAY
     Route: 048
     Dates: start: 20040621, end: 20040720
  10. GASTROZEPIN [Concomitant]
     Dosage: 75 MG/DAY
     Route: 048
     Dates: start: 20040721
  11. LEPONEX / CLOZARIL (CLOZAPINE) [Suspect]
     Dosage: 12.5 MG/DAY
     Route: 048
     Dates: start: 20040706, end: 20040707
  12. LEPONEX / CLOZARIL (CLOZAPINE) [Suspect]
     Dosage: 25 MG/DAY
     Route: 048
     Dates: start: 20040708, end: 20040708
  13. LEPONEX / CLOZARIL (CLOZAPINE) [Suspect]
     Dosage: 50 MG/DAY
     Route: 048
     Dates: start: 20040709, end: 20040711
  14. LEPONEX / CLOZARIL (CLOZAPINE) [Suspect]
     Dosage: 100 MG/DAY
     Route: 048
     Dates: start: 20040712, end: 20040713
  15. LEPONEX / CLOZARIL (CLOZAPINE) [Suspect]
     Dosage: 150 MG/DAY
     Route: 048
     Dates: start: 20040714, end: 20040714
  16. LEPONEX / CLOZARIL (CLOZAPINE) [Suspect]
     Dosage: 200 MG/DAY
     Route: 048
     Dates: start: 20040715, end: 20040715
  17. LEPONEX / CLOZARIL (CLOZAPINE) [Suspect]
     Dosage: 400 MG/DAY
     Route: 048
     Dates: start: 20040716, end: 20040720
  18. LEPONEX / CLOZARIL (CLOZAPINE) [Suspect]
     Dosage: 300 MG/DAY
     Route: 048
     Dates: start: 20040721, end: 20040721
  19. LEPONEX / CLOZARIL (CLOZAPINE) [Suspect]
     Dosage: 250 MG/DAY
     Route: 048
     Dates: start: 20040722, end: 20040722
  20. LEPONEX / CLOZARIL (CLOZAPINE) [Suspect]
     Dosage: 200 MG/DAY
     Route: 048
     Dates: start: 20040723, end: 20040723
  21. LEPONEX / CLOZARIL (CLOZAPINE) [Suspect]
     Dosage: 150 MG/DAY
     Route: 048
     Dates: start: 20040724, end: 20040724
  22. LEPONEX / CLOZARIL (CLOZAPINE) [Suspect]
     Dosage: 100 MG/DAY
     Route: 048
     Dates: start: 20040726, end: 20040729

REACTIONS (2)
  - DRUG INEFFECTIVE [None]
  - PLEUROTHOTONUS [None]
